FAERS Safety Report 14392479 (Version 5)
Quarter: 2018Q1

REPORT INFORMATION
  Report Type: Spontaneous
  Country: US (occurrence: US)
  Receive Date: 20180116
  Receipt Date: 20180206
  Transmission Date: 20180509
  Serious: Yes (Disabling, Other)
  Sender: FDA-Public Use
  Company Number: US-JAZZ-JPI-P-019362

PATIENT
  Sex: Female
  Weight: 56.82 kg

DRUGS (11)
  1. BYSTOLIC [Suspect]
     Active Substance: NEBIVOLOL HYDROCHLORIDE
     Indication: PRODUCT USED FOR UNKNOWN INDICATION
  2. RAYOS [Suspect]
     Active Substance: PREDNISONE
     Indication: PRODUCT USED FOR UNKNOWN INDICATION
  3. OMEPRAZOLE. [Concomitant]
     Active Substance: OMEPRAZOLE
     Indication: PRODUCT USED FOR UNKNOWN INDICATION
     Route: 048
  4. XYREM [Suspect]
     Active Substance: SODIUM OXYBATE
     Indication: SOMNOLENCE
     Dosage: 2.25 G, BID
     Route: 048
     Dates: start: 20180115
  5. PREDNISONE. [Suspect]
     Active Substance: PREDNISONE
     Indication: AUTOIMMUNE INNER EAR DISEASE
     Dosage: SINGLE (7.5 MG TO 30 MG PER DAY)
     Route: 048
     Dates: start: 201202
  6. PREDNISONE. [Suspect]
     Active Substance: PREDNISONE
     Dosage: SINGLE (10MG 1 AND 1/2 DAILY)
     Route: 048
  7. LABETALOL HYDROCHLORIDE. [Concomitant]
     Active Substance: LABETALOL HYDROCHLORIDE
     Route: 048
  8. MODAFINIL. [Suspect]
     Active Substance: MODAFINIL
     Indication: CATAPLEXY
     Route: 065
  9. HYDROCHLOROTHIAZIDE W/TRIAMTERENE [Concomitant]
     Active Substance: HYDROCHLOROTHIAZIDE\TRIAMTERENE
     Indication: PRODUCT USED FOR UNKNOWN INDICATION
     Dosage: QD (37.5-25MG)
     Route: 048
  10. LABETALOL HYDROCHLORIDE. [Concomitant]
     Active Substance: LABETALOL HYDROCHLORIDE
     Indication: HYPERTENSION
     Route: 048
     Dates: start: 201102
  11. XYREM [Suspect]
     Active Substance: SODIUM OXYBATE
     Indication: NARCOLEPSY
     Dosage: 2.25 G, BID
     Route: 048
     Dates: start: 20080411, end: 20130218

REACTIONS (11)
  - Autoimmune inner ear disease [Unknown]
  - Headache [Not Recovered/Not Resolved]
  - Deafness bilateral [Unknown]
  - Nerve injury [Unknown]
  - Treatment noncompliance [Unknown]
  - Hypertension [Recovered/Resolved]
  - Tinnitus [Not Recovered/Not Resolved]
  - Central nervous system stimulation [Unknown]
  - Dyspnoea [Unknown]
  - Insomnia [Unknown]
  - Vision blurred [Not Recovered/Not Resolved]

NARRATIVE: CASE EVENT DATE: 2011
